FAERS Safety Report 23432028 (Version 1)
Quarter: 2024Q1

REPORT INFORMATION
  Report Type: Report from Study
  Country: CN (occurrence: CN)
  Receive Date: 20240123
  Receipt Date: 20240123
  Transmission Date: 20240410
  Serious: Yes (Hospitalization)
  Sender: FDA-Public Use
  Company Number: CN-GTI-000102

PATIENT
  Age: 36 Year
  Sex: Male

DRUGS (1)
  1. PREDNISONE [Suspect]
     Active Substance: PREDNISONE
     Indication: Still^s disease
     Dosage: MORE THAN 7.5 MG PER DAY
     Route: 048

REACTIONS (7)
  - COVID-19 [Unknown]
  - Still^s disease [Unknown]
  - Condition aggravated [Unknown]
  - Pyrexia [Unknown]
  - Oropharyngeal pain [Unknown]
  - Myalgia [Unknown]
  - Arthralgia [Unknown]
